FAERS Safety Report 11871644 (Version 1)
Quarter: 2015Q4

REPORT INFORMATION
  Report Type: Report from Study
  Country: CA (occurrence: CA)
  Receive Date: 20151228
  Receipt Date: 20151228
  Transmission Date: 20160305
  Serious: Yes (Other)
  Sender: FDA-Public Use
  Company Number: CA-JNJFOC-20151220439

PATIENT
  Age: 34 Year
  Sex: Female
  Weight: 77 kg

DRUGS (20)
  1. SIMPONI [Suspect]
     Active Substance: GOLIMUMAB
     Indication: CROHN^S DISEASE
     Route: 058
     Dates: start: 20151208
  2. APO-PREDNISONE [Concomitant]
     Active Substance: PREDNISONE
     Route: 065
     Dates: start: 20151217
  3. PANTOPRAZOLE [Concomitant]
     Active Substance: PANTOPRAZOLE SODIUM
     Route: 065
     Dates: start: 20151216
  4. NOVO-GESIC [Concomitant]
     Route: 065
     Dates: start: 20151118
  5. HYDROMORPH CONTIN [Concomitant]
     Active Substance: HYDROMORPHONE
     Route: 065
     Dates: start: 20150525
  6. LENOLTECH NO 3 [Concomitant]
     Dosage: 300/15/30
     Route: 065
     Dates: start: 20150911
  7. RAN CLARITHROMYCIN [Concomitant]
     Active Substance: CLARITHROMYCIN
     Route: 065
     Dates: start: 20151216
  8. RATIO-MORPHINE [Concomitant]
     Route: 065
     Dates: start: 20111106
  9. LENOLTECH NO 3 [Concomitant]
     Dosage: 300/15/30
     Route: 065
     Dates: start: 20150414
  10. SIMPONI [Suspect]
     Active Substance: GOLIMUMAB
     Indication: COLITIS
     Route: 058
     Dates: start: 20151208
  11. HUMIRA [Concomitant]
     Active Substance: ADALIMUMAB
     Route: 065
  12. PANTOPRAZOLE [Concomitant]
     Active Substance: PANTOPRAZOLE SODIUM
     Route: 065
     Dates: start: 20151118
  13. RATIO-MORPHINE [Concomitant]
     Route: 065
     Dates: start: 20111120
  14. CYMBALTA [Concomitant]
     Active Substance: DULOXETINE HYDROCHLORIDE
     Dates: start: 20150525
  15. CYMBALTA [Concomitant]
     Active Substance: DULOXETINE HYDROCHLORIDE
     Dates: start: 20150426
  16. ESCITALOPRAM [Concomitant]
     Active Substance: ESCITALOPRAM OXALATE
     Route: 065
     Dates: start: 20150205
  17. PMS-HYDROMORPHONE [Concomitant]
     Active Substance: HYDROMORPHONE HYDROCHLORIDE
     Route: 065
     Dates: start: 20151118
  18. METRONIDAZOLE. [Concomitant]
     Active Substance: METRONIDAZOLE
     Route: 065
     Dates: start: 20151118
  19. CEPHALEXINE [Concomitant]
     Active Substance: CEPHALEXIN
     Route: 065
     Dates: start: 20151007
  20. OMNARIS [Concomitant]
     Active Substance: CICLESONIDE
     Route: 045

REACTIONS (1)
  - Helicobacter infection [Not Recovered/Not Resolved]

NARRATIVE: CASE EVENT DATE: 20151215
